FAERS Safety Report 9646426 (Version 1)
Quarter: 2013Q4

REPORT INFORMATION
  Report Type: Spontaneous
  Country: ES (occurrence: ES)
  Receive Date: 20131025
  Receipt Date: 20131025
  Transmission Date: 20140711
  Serious: Yes (Other)
  Sender: FDA-Public Use
  Company Number: ES-BRISTOL-MYERS SQUIBB COMPANY-19628155

PATIENT
  Age: 80 Year
  Sex: Male

DRUGS (1)
  1. MITOMYCIN-C [Suspect]
     Dates: start: 20130409

REACTIONS (2)
  - Pruritus generalised [Recovered/Resolved]
  - Erythema [Recovered/Resolved]
